FAERS Safety Report 6769669-0 (Version None)
Quarter: 2010Q2

REPORT INFORMATION
  Report Type: 
  Country: None (occurrence: None)
  Receive Date: 20100520
  Receipt Date: 20090604
  Transmission Date: 20101027
  Serious: Yes (Other)
  Sender: FDA-Public Use
  Company Number: 2008058154

PATIENT
  Age: 55 Year
  Sex: Female
  Weight: 66 kg

DRUGS (4)
  1. PROVERA [Suspect]
     Indication: HORMONE REPLACEMENT THERAPY
     Dosage: , ORAL
     Route: 048
     Dates: start: 19840101, end: 19900101
  2. PREMARIN [Suspect]
     Indication: HORMONE REPLACEMENT THERAPY
     Dates: start: 19900101, end: 19940101
  3. PROGESTERONE [Suspect]
     Indication: HORMONE REPLACEMENT THERAPY
     Dates: start: 19870101, end: 19900101
  4. DIOVANE (VALSARTAN) [Concomitant]

REACTIONS (1)
  - BREAST CANCER FEMALE [None]
